FAERS Safety Report 22604689 (Version 5)
Quarter: 2023Q4

REPORT INFORMATION
  Report Type: Spontaneous
  Country: JP (occurrence: JP)
  Receive Date: 20230615
  Receipt Date: 20231121
  Transmission Date: 20240110
  Serious: Yes (Other)
  Sender: FDA-Public Use
  Company Number: None

PATIENT

DRUGS (2)
  1. DAPRODUSTAT [Suspect]
     Active Substance: DAPRODUSTAT
     Indication: Nephrogenic anaemia
     Dosage: 4 MG, QD
  2. DAPRODUSTAT [Suspect]
     Active Substance: DAPRODUSTAT
     Dosage: 6 MG, QD

REACTIONS (3)
  - Retinal haemorrhage [Recovered/Resolved]
  - Neovascular age-related macular degeneration [Unknown]
  - Haemodialysis [Unknown]
